FAERS Safety Report 14165793 (Version 1)
Quarter: 2017Q4

REPORT INFORMATION
  Report Type: Spontaneous
  Country: AU (occurrence: AU)
  Receive Date: 20171107
  Receipt Date: 20171107
  Transmission Date: 20180321
  Serious: Yes (Life-Threatening, Hospitalization, Other)
  Sender: FDA-Public Use
  Company Number: AU-JNJFOC-20171102795

PATIENT
  Age: 60 Year
  Sex: Female

DRUGS (1)
  1. IMBRUVICA [Suspect]
     Active Substance: IBRUTINIB
     Indication: CHRONIC LYMPHOCYTIC LEUKAEMIA
     Route: 048

REACTIONS (3)
  - Pulmonary embolism [Unknown]
  - Neutropenia [Unknown]
  - Cytopenia [Recovering/Resolving]
